FAERS Safety Report 5906852-8 (Version None)
Quarter: 2008Q3

REPORT INFORMATION
  Report Type: 
  Country: None (occurrence: None)
  Receive Date: 20080929
  Receipt Date: 20080916
  Transmission Date: 20090109
  Serious: Yes (Other)
  Sender: FDA-Public Use
  Company Number: 2008BI024183

PATIENT
  Age: 48 Year
  Sex: Female
  Weight: 81.6475 kg

DRUGS (3)
  1. AVONEX [Suspect]
     Indication: MULTIPLE SCLEROSIS
     Dosage: 30 UG; QW; IM
     Route: 030
     Dates: start: 20080806, end: 20080806
  2. DILANTIN (CON.) [Concomitant]
  3. KEPPRA (CON.) [Concomitant]

REACTIONS (4)
  - ANAPHYLACTIC REACTION [None]
  - EPILEPSY [None]
  - FATIGUE [None]
  - INFLUENZA LIKE ILLNESS [None]
